FAERS Safety Report 5122488-3 (Version None)
Quarter: 2006Q4

REPORT INFORMATION
  Report Type: 
  Country: None (occurrence: None)
  Receive Date: 20061004
  Receipt Date: 20060920
  Transmission Date: 20070319
  Serious: Yes (Hospitalization)
  Sender: FDA-Public Use
  Company Number: 2006RR-03831

PATIENT
  Age: 69 Year
  Sex: Male

DRUGS (8)
  1. SIMVASTATIN [Suspect]
  2. CYCLOSPORINE [Suspect]
  3. AMLODIPINE [Suspect]
  4. URSODIOL [Concomitant]
  5. MYCOPHENOLATE MOFETIL [Concomitant]
  6. PREDNISOLONE [Concomitant]
  7. NPH INSULIN [Concomitant]
  8. ATENOLOL [Concomitant]

REACTIONS (2)
  - DRUG INTERACTION [None]
  - RHABDOMYOLYSIS [None]
